FAERS Safety Report 7217627-4 (Version None)
Quarter: 2010Q4

REPORT INFORMATION
  Report Type: 
  Country: None (occurrence: None)
  Receive Date: 20101227
  Receipt Date: 20101220
  Transmission Date: 20110411
  Serious: Yes (Hospitalization, Disabling, Other)
  Sender: FDA-Public Use
  Company Number: 2010SP034645

PATIENT
  Age: 27 Year
  Sex: Female
  Weight: 52.6173 kg

DRUGS (7)
  1. NUVARING [Suspect]
     Indication: ENDOMETRIOSIS
     Dates: start: 20080424, end: 20080620
  2. NUVARING [Suspect]
     Indication: MUSCLE SPASMS
     Dates: start: 20080424, end: 20080620
  3. DOXYCYCLINE HYCLATE [Concomitant]
  4. RETIN-A [Concomitant]
  5. TRIAMCINOLONE [Concomitant]
  6. CLEOCIN [Concomitant]
  7. KETOCONAZOLE [Concomitant]

REACTIONS (29)
  - ACINETOBACTER INFECTION [None]
  - ANTIPHOSPHOLIPID ANTIBODIES [None]
  - BRAIN ABSCESS [None]
  - BRAIN CONTUSION [None]
  - BRAIN HERNIATION [None]
  - BRAIN MIDLINE SHIFT [None]
  - BRAIN OEDEMA [None]
  - BRONCHOPNEUMONIA [None]
  - CAROTID ARTERY STENOSIS [None]
  - CNS VENTRICULITIS [None]
  - CONVULSION [None]
  - DEEP VEIN THROMBOSIS [None]
  - ENTEROCOCCUS TEST POSITIVE [None]
  - FUNGAL INFECTION [None]
  - HYDROCEPHALUS [None]
  - HYPOXIC-ISCHAEMIC ENCEPHALOPATHY [None]
  - INTRACRANIAL VENOUS SINUS THROMBOSIS [None]
  - INTRAVENTRICULAR HAEMORRHAGE [None]
  - MENINGITIS [None]
  - MENTAL DISORDER [None]
  - MIGRAINE [None]
  - PARTIAL SEIZURES [None]
  - PHARYNGEAL ABSCESS [None]
  - PSEUDOMONAS INFECTION [None]
  - QUADRIPLEGIA [None]
  - RESPIRATORY FAILURE [None]
  - SERRATIA TEST POSITIVE [None]
  - SUBARACHNOID HAEMORRHAGE [None]
  - URINARY TRACT INFECTION [None]
